FAERS Safety Report 5937479-X (Version None)
Quarter: 2008Q4

REPORT INFORMATION
  Report Type: 
  Country: None (occurrence: None)
  Receive Date: 20081031
  Receipt Date: 20081020
  Transmission Date: 20090506
  Serious: Yes (Death)
  Sender: FDA-Public Use
  Company Number: B0544091A

PATIENT
  Age: 47 Year
  Sex: Male

DRUGS (3)
  1. TRIZIVIR [Suspect]
     Indication: HIV INFECTION
     Route: 048
     Dates: start: 20060126
  2. WELLVONE [Concomitant]
     Route: 048
  3. BACTRIM [Concomitant]
     Route: 048

REACTIONS (1)
  - LIVER DISORDER [None]
